FAERS Safety Report 5570249-3 (Version None)
Quarter: 2007Q4

REPORT INFORMATION
  Report Type: 
  Country: None (occurrence: None)
  Receive Date: 20071219
  Receipt Date: 20071207
  Transmission Date: 20080405
  Serious: Yes (Other)
  Sender: FDA-Public Use
  Company Number: 2007337382

PATIENT
  Age: 59 Year
  Sex: Female
  Weight: 56.7 kg

DRUGS (8)
  1. SUDAFED S.A. [Suspect]
     Indication: SINUS HEADACHE
     Dosage: 1 DAILY (30 MG,1 IN 1 D), ORAL
     Route: 048
     Dates: start: 19900101
  2. NEXIUM [Concomitant]
  3. REMERON [Concomitant]
  4. AXID [Concomitant]
  5. KLONOPIN [Concomitant]
  6. LORAZEPAM [Concomitant]
  7. FIORICET (BUTALBITAL, CAFFINE, PARACETAMOL) [Concomitant]
  8. FIORICET W/CODEINE (BUTALBITAL, CAFFINE, CODINE, PHOSPHATE, PARACETAMO [Concomitant]

REACTIONS (7)
  - ANXIETY [None]
  - DRUG DEPENDENCE [None]
  - DRUG WITHDRAWAL SYNDROME [None]
  - FATIGUE [None]
  - HYPERHIDROSIS [None]
  - INFLUENZA LIKE ILLNESS [None]
  - POOR QUALITY SLEEP [None]
